FAERS Safety Report 4618720-2 (Version None)
Quarter: 2005Q1

REPORT INFORMATION
  Report Type: 
  Country: None (occurrence: None)
  Receive Date: 20050323
  Receipt Date: 20050309
  Transmission Date: 20050727
  Serious: Yes (Hospitalization, Other)
  Sender: FDA-Public Use
  Company Number: USA050392751

PATIENT
  Age: 71 Year
  Sex: Female

DRUGS (1)
  1. HUMULIN 50/50 [Suspect]
     Dosage: 30 U/ 2 DAY
     Dates: start: 19930101

REACTIONS (7)
  - ARTERIAL OCCLUSIVE DISEASE [None]
  - BLADDER DISORDER [None]
  - CATARACT [None]
  - MYOCARDIAL INFARCTION [None]
  - PHARMACEUTICAL PRODUCT COMPLAINT [None]
  - THROMBOSIS [None]
  - VISUAL DISTURBANCE [None]
